FAERS Safety Report 21829523 (Version 1)
Quarter: 2023Q1

REPORT INFORMATION
  Report Type: Other
  Country: CA (occurrence: None)
  Receive Date: 20230106
  Receipt Date: 20230106
  Transmission Date: 20230417
  Serious: No
  Sender: FDA-Public Use
  Company Number: CA-ROCHE-3254960

PATIENT
  Age: 62 Year
  Sex: Female

DRUGS (1)
  1. OCREVUS [Suspect]
     Active Substance: OCRELIZUMAB
     Indication: Relapsing-remitting multiple sclerosis
     Dosage: THEN 600 MG EVERY 6 MONTH, MOST RECENT INFUSION ON 03/JAN/2023.
     Route: 042
     Dates: start: 20210518

REACTIONS (5)
  - Balance disorder [Recovered/Resolved]
  - Wrist fracture [Recovering/Resolving]
  - Fall [Unknown]
  - Limb injury [Unknown]
  - Fungal infection [Recovered/Resolved]

NARRATIVE: CASE EVENT DATE: 20221112
